FAERS Safety Report 12353071 (Version 1)
Quarter: 2016Q2

REPORT INFORMATION
  Report Type: Spontaneous
  Country: US (occurrence: US)
  Receive Date: 20160510
  Receipt Date: 20160510
  Transmission Date: 20160815
  Serious: No
  Sender: FDA-Public Use
  Company Number: US-ASTRAZENECA-2012SE00443

PATIENT
  Age: 46 Year
  Sex: Female

DRUGS (5)
  1. CRESTOR [Suspect]
     Active Substance: ROSUVASTATIN CALCIUM
     Indication: BLOOD CHOLESTEROL
     Route: 048
     Dates: start: 2003
  2. IBUPROFEN. [Concomitant]
     Active Substance: IBUPROFEN
     Indication: PAIN
     Dosage: 800 MG EVERY 4 HOUR AND 100 MG AT BEDTIME
  3. GLUCOSAMINE [Concomitant]
     Active Substance: GLUCOSAMINE
     Indication: PAIN
     Dosage: 800 MG EVERY 4 HOUR AND 100 MG AT BEDTIME
  4. SYMBICORT [Suspect]
     Active Substance: BUDESONIDE\FORMOTEROL FUMARATE DIHYDRATE
     Indication: DYSPNOEA
     Dosage: 2 PUFF TWICE A DAY , TWO TIMES A DAY
     Route: 055
  5. VITAMIN D [Concomitant]
     Active Substance: CHOLECALCIFEROL
     Indication: PAIN
     Dosage: 800 MG EVERY 4 HOUR AND 100 MG AT BEDTIME

REACTIONS (8)
  - Gait disturbance [Unknown]
  - Weight increased [Unknown]
  - Drug ineffective [Unknown]
  - Arthralgia [Unknown]
  - Intentional product misuse [Unknown]
  - Joint range of motion decreased [Unknown]
  - Dyspnoea [Unknown]
  - Blood triglycerides increased [Unknown]
